FAERS Safety Report 12435486 (Version 6)
Quarter: 2019Q1

REPORT INFORMATION
  Report Type: Report from Study
  Country: US (occurrence: US)
  Receive Date: 20160603
  Receipt Date: 20190110
  Transmission Date: 20190417
  Serious: Yes (Other)
  Sender: FDA-Public Use
  Company Number: US-ROCHE-1677827

PATIENT
  Sex: Female

DRUGS (9)
  1. ACTEMRA [Suspect]
     Active Substance: TOCILIZUMAB
     Route: 058
     Dates: start: 20170904
  2. ACTEMRA [Suspect]
     Active Substance: TOCILIZUMAB
     Dosage: Q 2 WEEKS
     Route: 058
     Dates: start: 20151021
  3. ACTEMRA [Suspect]
     Active Substance: TOCILIZUMAB
     Route: 058
     Dates: start: 20171220
  4. METHOTREXATE. [Concomitant]
     Active Substance: METHOTREXATE
  5. NAPHAZOLINE [Concomitant]
     Active Substance: NAPHAZOLINE\NAPHAZOLINE HYDROCHLORIDE
  6. ACTEMRA [Suspect]
     Active Substance: TOCILIZUMAB
     Dosage: 162MG/0.9ML
     Route: 058
     Dates: start: 20160322
  7. ACTEMRA [Suspect]
     Active Substance: TOCILIZUMAB
     Indication: RHEUMATOID ARTHRITIS
     Route: 058
     Dates: start: 20120322
  8. FAMOTIDINE. [Concomitant]
     Active Substance: FAMOTIDINE
  9. ACTEMRA [Suspect]
     Active Substance: TOCILIZUMAB
     Route: 058
     Dates: start: 20151014

REACTIONS (26)
  - Flushing [Unknown]
  - Swelling face [Unknown]
  - Nausea [Unknown]
  - Injection site pain [Unknown]
  - Visual impairment [Unknown]
  - Pain [Unknown]
  - Limb discomfort [Unknown]
  - Arthralgia [Unknown]
  - Fine motor skill dysfunction [Unknown]
  - Headache [Unknown]
  - Dizziness [Unknown]
  - Restlessness [Unknown]
  - Oral pain [Unknown]
  - Contusion [Unknown]
  - Gingival pain [Unknown]
  - Oropharyngeal pain [Unknown]
  - Fatigue [Unknown]
  - Purpura [Unknown]
  - Hypersensitivity vasculitis [Unknown]
  - Joint stiffness [Unknown]
  - Restless legs syndrome [Unknown]
  - Rash [Unknown]
  - Skin ulcer [Unknown]
  - Stomatitis [Unknown]
  - Skin burning sensation [Unknown]
  - Limb mass [Unknown]
